FAERS Safety Report 23223150 (Version 1)
Quarter: 2023Q4

REPORT INFORMATION
  Report Type: Spontaneous
  Country: PT (occurrence: PT)
  Receive Date: 20231123
  Receipt Date: 20231123
  Transmission Date: 20240110
  Serious: Yes (Other)
  Sender: FDA-Public Use
  Company Number: PT-009507513-2311PRT008109

PATIENT
  Age: 61 Year
  Sex: Male

DRUGS (3)
  1. PEMBROLIZUMAB [Suspect]
     Active Substance: PEMBROLIZUMAB
     Dates: start: 201907
  2. PEMETREXED [Suspect]
     Active Substance: PEMETREXED
  3. CARBOPLATIN [Suspect]
     Active Substance: CARBOPLATIN

REACTIONS (16)
  - Febrile neutropenia [Unknown]
  - Hepatotoxicity [Unknown]
  - Malignant neoplasm progression [Unknown]
  - Post procedural oedema [Unknown]
  - General physical health deterioration [Unknown]
  - Dyspnoea exertional [Unknown]
  - Toxicity to various agents [Unknown]
  - Fall [Unknown]
  - Oedema peripheral [Unknown]
  - Anaemia [Unknown]
  - Asthenia [Unknown]
  - Dyspnoea [Unknown]
  - Fatigue [Unknown]
  - Cough [Unknown]
  - Headache [Unknown]
  - Dizziness [Unknown]

NARRATIVE: CASE EVENT DATE: 20190101
